FAERS Safety Report 24139153 (Version 1)
Quarter: 2024Q3

REPORT INFORMATION
  Report Type: Spontaneous
  Country: JP (occurrence: JP)
  Receive Date: 20240726
  Receipt Date: 20240726
  Transmission Date: 20241017
  Serious: Yes (Death, Other)
  Sender: GENMAB
  Company Number: JP-GENMAB-2024-02643

PATIENT
  Age: 66 Year
  Sex: Female

DRUGS (5)
  1. EPKINLY [Suspect]
     Active Substance: EPCORITAMAB-BYSP
     Indication: Diffuse large B-cell lymphoma refractory
     Dosage: UNK, FOUR DOSES WAS ADMINISTERED IN CYCLE 1, THREE DOSES WAS ADMINISTERED IN CYCLE 2
     Route: 065
     Dates: start: 202405, end: 202406
  2. PREDNISOLONE [Concomitant]
     Active Substance: PREDNISOLONE
     Dosage: UNK, ON DAY 1 OF ADMINISTRATION OF EPKINLY, AND A FEW DAYS LATER (UNTIL THE SECOND ADMINISTRATION IN
     Dates: start: 202405, end: 202405
  3. PREDNISOLONE [Concomitant]
     Active Substance: PREDNISOLONE
     Dosage: UNK, FROM DAY 1 OF THE THIRD ADMINISTRATION IN CYCLE 1 OF EPKINLY
     Dates: start: 202405, end: 202406
  4. ANTIHISTAMINES NOS [Concomitant]
     Active Substance: ANTIHISTAMINES NOS
     Dosage: UNK
     Dates: start: 202405, end: 202406
  5. ACETAMINOPHEN [Concomitant]
     Active Substance: ACETAMINOPHEN
     Dosage: UNK
     Dates: start: 202405, end: 202406

REACTIONS (1)
  - Diffuse large B-cell lymphoma refractory [Fatal]

NARRATIVE: CASE EVENT DATE: 20240101
